FAERS Safety Report 4964958-4 (Version None)
Quarter: 2006Q2

REPORT INFORMATION
  Report Type: 
  Country: None (occurrence: None)
  Receive Date: 20060403
  Receipt Date: 20060324
  Transmission Date: 20061013
  Serious: Yes (Hospitalization, Other)
  Sender: FDA-Public Use
  Company Number: 2005-06-1329

PATIENT
  Age: 74 Year
  Sex: Female
  Weight: 51 kg

DRUGS (6)
  1. CELESTAMINE TAB [Suspect]
     Indication: PRURITUS
     Dosage: 2 TABS ORAL
     Route: 048
     Dates: start: 20041201, end: 20050616
  2. ADETPHOS TABLETS [Concomitant]
  3. DIPYRIDAMOLE TABLETS [Concomitant]
  4. ALFALCALCODIOL TABLETS [Concomitant]
  5. THYRADIN S TABLETS [Concomitant]
  6. FUDOSTEINE TABLETS [Concomitant]

REACTIONS (7)
  - ATROPHY [None]
  - BLOOD CORTICOTROPHIN DECREASED [None]
  - BLOOD CORTISOL DECREASED [None]
  - EMPTY SELLA SYNDROME [None]
  - HYPOTHALAMO-PITUITARY DISORDERS [None]
  - SECONDARY ADRENOCORTICAL INSUFFICIENCY [None]
  - WEIGHT INCREASED [None]
